FAERS Safety Report 15854475 (Version 2)
Quarter: 2019Q1

REPORT INFORMATION
  Report Type: Report from Study
  Country: KR (occurrence: KR)
  Receive Date: 20190122
  Receipt Date: 20190125
  Transmission Date: 20190417
  Serious: Yes (Hospitalization)
  Sender: FDA-Public Use
  Company Number: KR-009507513-1901KOR007949

PATIENT
  Age: 56 Year
  Sex: Female

DRUGS (14)
  1. LEVETIRACETAM. [Concomitant]
     Active Substance: LEVETIRACETAM
     Indication: SEIZURE
     Dosage: UNIT DOSE: 1, BID
     Route: 048
     Dates: start: 20150116
  2. LAMOTRIGINE. [Concomitant]
     Active Substance: LAMOTRIGINE
     Indication: SEIZURE
     Dosage: UNIT DOSE: 1, QD
     Route: 048
     Dates: start: 20181025
  3. LAMOTRIGINE. [Concomitant]
     Active Substance: LAMOTRIGINE
     Indication: SEIZURE
     Dosage: UNIT DOSE: 2, BID
     Route: 048
     Dates: start: 20140822
  4. ESCITALOPRAM [Concomitant]
     Active Substance: ESCITALOPRAM OXALATE
     Indication: SEIZURE
     Dosage: UNIT DOSE: 1, QD
     Route: 048
     Dates: start: 20150116
  5. REBAMIPIDE [Concomitant]
     Active Substance: REBAMIPIDE
     Indication: GASTROINTESTINAL DISORDER PROPHYLAXIS
     Dosage: UNIT DOSE: 1, BID
     Route: 048
     Dates: start: 20141110
  6. TIBOLONE [Concomitant]
     Active Substance: TIBOLONE
     Indication: MENOPAUSAL SYMPTOMS
     Dosage: UNIT DOSE: 1, QD
     Route: 048
     Dates: start: 20180309
  7. METFORMIN [Concomitant]
     Active Substance: METFORMIN HYDROCHLORIDE
     Indication: DIABETES MELLITUS
     Dosage: UNIT DOSE:1, BID
     Route: 048
     Dates: start: 20180726
  8. CLOBAZAM. [Concomitant]
     Active Substance: CLOBAZAM
     Indication: SEIZURE
     Dosage: 1 DOSAGE FORM, QD
     Route: 048
     Dates: start: 20140822
  9. ZONISAMIDE. [Concomitant]
     Active Substance: ZONISAMIDE
     Indication: SEIZURE
     Dosage: 1 DOSAGE FORM, BID
     Route: 048
     Dates: start: 20140822
  10. DIQUAS [Concomitant]
     Active Substance: DIQUAFOSOL TETRASODIUM
     Indication: DRY EYE
     Dosage: STRENGTH: 3% 0.4ML (UNIT DOSE: 1), QID
     Route: 047
     Dates: start: 20181002
  11. DUVIE [Suspect]
     Active Substance: LOBEGLITAZONE SULFATE
     Indication: TYPE 2 DIABETES MELLITUS
     Dosage: 1 TABLET, QD
     Route: 048
     Dates: start: 20181004
  12. METFORMIN HYDROCHLORIDE. [Concomitant]
     Active Substance: METFORMIN HYDROCHLORIDE
     Indication: TYPE 2 DIABETES MELLITUS
     Dosage: UNIT DOSE: 1, BID
     Route: 048
     Dates: start: 20181004
  13. ROSUVASTATIN. [Concomitant]
     Active Substance: ROSUVASTATIN
     Indication: HYPERLIPIDAEMIA
     Dosage: 1 DOSAGE FORM, QD
     Route: 048
     Dates: start: 20180419
  14. JANUVIA [Suspect]
     Active Substance: SITAGLIPTIN PHOSPHATE
     Indication: TYPE 2 DIABETES MELLITUS
     Dosage: 1 TABLET, QD
     Route: 048
     Dates: start: 20181004

REACTIONS (2)
  - Ligament sprain [Recovered/Resolved]
  - Road traffic accident [Recovered/Resolved]

NARRATIVE: CASE EVENT DATE: 20181109
